FAERS Safety Report 10419071 (Version 1)
Quarter: 2014Q3

REPORT INFORMATION
  Report Type: Spontaneous
  Country: RO (occurrence: RO)
  Receive Date: 20140829
  Receipt Date: 20140829
  Transmission Date: 20150326
  Serious: Yes (Death)
  Sender: FDA-Public Use
  Company Number: RO-ABBVIE-14K-135-1276584-00

PATIENT
  Age: 71 Year
  Sex: Male
  Weight: 76 kg

DRUGS (3)
  1. DIAPREL [Concomitant]
     Active Substance: GLICLAZIDE
     Indication: DIABETES MELLITUS
  2. HUMIRA [Suspect]
     Active Substance: ADALIMUMAB
     Indication: PSORIASIS
     Route: 058
  3. LOCKREN [Concomitant]
     Indication: HYPERTENSION

REACTIONS (2)
  - Cerebral haemorrhage [Fatal]
  - Hemiplegia [Unknown]

NARRATIVE: CASE EVENT DATE: 20140821
